FAERS Safety Report 25822569 (Version 1)
Quarter: 2025Q3

REPORT INFORMATION
  Report Type: Spontaneous
  Country: US (occurrence: US)
  Receive Date: 20250919
  Receipt Date: 20250919
  Transmission Date: 20251021
  Serious: Yes (Life-Threatening, Hospitalization, Other)
  Sender: RANBAXY
  Company Number: US-SUN PHARMACEUTICAL INDUSTRIES LTD-2025R1-527745

PATIENT
  Age: 52 Year
  Sex: Female

DRUGS (8)
  1. LACTULOSE [Suspect]
     Active Substance: LACTULOSE
     Indication: Hyperammonaemia
     Route: 065
  2. FLUCONAZOLE [Suspect]
     Active Substance: FLUCONAZOLE
     Indication: Abdominal abscess
     Route: 065
  3. FLUCONAZOLE [Suspect]
     Active Substance: FLUCONAZOLE
     Indication: Pneumonia serratia
  4. MEROPENEM [Suspect]
     Active Substance: MEROPENEM
     Indication: Abdominal abscess
     Route: 065
  5. MEROPENEM [Suspect]
     Active Substance: MEROPENEM
     Indication: Pneumonia serratia
  6. RIFAXIMIN [Suspect]
     Active Substance: RIFAXIMIN
     Indication: Hyperammonaemia
     Route: 065
  7. VANCOMYCIN [Suspect]
     Active Substance: VANCOMYCIN
     Indication: Abdominal abscess
     Route: 065
  8. VANCOMYCIN [Suspect]
     Active Substance: VANCOMYCIN
     Indication: Pneumonia serratia

REACTIONS (5)
  - Drug ineffective [Unknown]
  - Respiratory distress [Unknown]
  - Pleural effusion [Unknown]
  - Condition aggravated [Unknown]
  - Urea cycle disorder [Unknown]
